FAERS Safety Report 17292680 (Version 1)
Quarter: 2020Q1

REPORT INFORMATION
  Report Type: Spontaneous
  Country: US (occurrence: US)
  Receive Date: 20200119
  Receipt Date: 20200119
  Transmission Date: 20200409
  Serious: Yes (Disabling)
  Sender: FDA-Public Use
  Company Number: None

PATIENT
  Age: 52 Year
  Sex: Female
  Weight: 135 kg

DRUGS (3)
  1. WIXELA INHUB [Suspect]
     Active Substance: FLUTICASONE PROPIONATE\SALMETEROL XINAFOATE
     Indication: ASTHMA
     Dosage: ?          QUANTITY:1 PUFF(S);?
     Route: 055
     Dates: start: 20200116, end: 20200119
  2. ALBUTEROL. [Concomitant]
     Active Substance: ALBUTEROL
  3. LEXAPRO [Concomitant]
     Active Substance: ESCITALOPRAM OXALATE

REACTIONS (6)
  - Palpitations [None]
  - Product complaint [None]
  - Heart rate increased [None]
  - Fatigue [None]
  - Hypopnoea [None]
  - Dyspnoea [None]

NARRATIVE: CASE EVENT DATE: 20200116
